FAERS Safety Report 17076168 (Version 4)
Quarter: 2019Q4

REPORT INFORMATION
  Report Type: Spontaneous
  Country: GB (occurrence: JP)
  Receive Date: 20191126
  Receipt Date: 20191231
  Transmission Date: 20200122
  Serious: Yes (Other)
  Sender: FDA-Public Use
  Company Number: JP-ASTELLAS-2019US046612

PATIENT
  Age: 61 Year
  Sex: Female
  Weight: 48 kg

DRUGS (34)
  1. ERLOTINIB [Suspect]
     Active Substance: ERLOTINIB
     Indication: LUNG ADENOCARCINOMA
     Route: 048
     Dates: start: 20130917
  2. AVASTIN [Suspect]
     Active Substance: BEVACIZUMAB
     Dosage: UNK UNK, UNKNOWN FREQ. (DOSAGE IS UNCERTAIN.)
     Route: 041
     Dates: start: 20171101, end: 20180801
  3. TECENTRIQ [Suspect]
     Active Substance: ATEZOLIZUMAB
     Indication: NON-SMALL CELL LUNG CANCER
     Dosage: DOSAGE IS UNCERTAIN.
     Route: 041
     Dates: start: 20191029
  4. AVASTIN [Suspect]
     Active Substance: BEVACIZUMAB
     Route: 041
     Dates: start: 20161214
  5. CARBOPLATIN. [Concomitant]
     Active Substance: CARBOPLATIN
     Indication: LUNG ADENOCARCINOMA
  6. ERLOTINIB [Suspect]
     Active Substance: ERLOTINIB
     Route: 048
     Dates: start: 20180411
  7. ERLOTINIB [Suspect]
     Active Substance: ERLOTINIB
     Dosage: 50 MG, UNKNOWN FREQ. (ONLY ON THE THIRD)
     Route: 048
     Dates: start: 20180725
  8. AVASTIN [Suspect]
     Active Substance: BEVACIZUMAB
     Dosage: UNK UNK, UNKNOWN FREQ.
     Route: 041
     Dates: start: 20191029
  9. TAXOTERE [Suspect]
     Active Substance: DOCETAXEL
     Indication: LUNG ADENOCARCINOMA
     Route: 041
     Dates: start: 20150707, end: 20170308
  10. PACLITAXEL. [Concomitant]
     Active Substance: PACLITAXEL
     Indication: NON-SMALL CELL LUNG CANCER
     Dosage: DOSAGE IS UNCERTAIN.
     Route: 041
     Dates: start: 201909
  11. PACLITAXEL. [Concomitant]
     Active Substance: PACLITAXEL
     Indication: LUNG ADENOCARCINOMA
  12. DOCETAXEL. [Concomitant]
     Active Substance: DOCETAXEL
     Indication: LUNG ADENOCARCINOMA
     Dosage: DOSAGE IS UNCERTAIN.
     Route: 041
  13. AVASTIN [Suspect]
     Active Substance: BEVACIZUMAB
     Indication: LUNG ADENOCARCINOMA
     Dosage: 15 MG/KG, UNKNOWN FREQ. (TOTAL DOSE OF 700 MG)
     Route: 041
     Dates: start: 201305
  14. AVASTIN [Suspect]
     Active Substance: BEVACIZUMAB
     Dosage: UNK UNK, UNKNOWN FREQ.
     Route: 041
     Dates: start: 20190910
  15. TAXOTERE [Suspect]
     Active Substance: DOCETAXEL
     Route: 041
     Dates: start: 20170412, end: 20170830
  16. CARBOPLATIN. [Concomitant]
     Active Substance: CARBOPLATIN
     Indication: NON-SMALL CELL LUNG CANCER
     Dosage: DOSAGE IS UNCERTAIN.
     Route: 041
     Dates: start: 201909
  17. PEGFILGRASTIM [Concomitant]
     Active Substance: PEGFILGRASTIM
     Indication: PRODUCT USED FOR UNKNOWN INDICATION
     Route: 058
     Dates: start: 20150805, end: 20161117
  18. ERLOTINIB [Suspect]
     Active Substance: ERLOTINIB
     Route: 048
     Dates: start: 20140507, end: 2014
  19. RANMARK [Suspect]
     Active Substance: DENOSUMAB
     Route: 065
     Dates: start: 20191002, end: 20191002
  20. TAGRISSO [Concomitant]
     Active Substance: OSIMERTINIB
     Indication: LUNG ADENOCARCINOMA
     Dosage: DOSE INTERVAL UNCERTAINTY
     Route: 048
     Dates: start: 20180905
  21. ERLOTINIB [Suspect]
     Active Substance: ERLOTINIB
     Route: 048
     Dates: start: 20140730
  22. ERLOTINIB [Suspect]
     Active Substance: ERLOTINIB
     Route: 048
     Dates: start: 20171213, end: 201712
  23. AVASTIN [Suspect]
     Active Substance: BEVACIZUMAB
     Route: 041
     Dates: start: 20180516
  24. RANMARK [Suspect]
     Active Substance: DENOSUMAB
     Indication: METASTASES TO BONE
     Route: 065
     Dates: start: 20190904, end: 20190904
  25. GEMCITABINE HYDROCHLORIDE. [Concomitant]
     Active Substance: GEMCITABINE HYDROCHLORIDE
     Indication: LUNG ADENOCARCINOMA
     Dosage: DOSAGE IS UNCERTAIN.
     Route: 041
     Dates: start: 20190910
  26. TAGRISSO [Concomitant]
     Active Substance: OSIMERTINIB
     Dosage: DOSE INTERVAL UNCERTAINTY
     Route: 048
     Dates: start: 20181010
  27. ERLOTINIB [Suspect]
     Active Substance: ERLOTINIB
     Route: 048
     Dates: start: 20171227, end: 20180314
  28. ERLOTINIB [Suspect]
     Active Substance: ERLOTINIB
     Dosage: UNK UNK, UNKNOWN FREQ. (DOSE IS UNCERTAIN)
     Route: 048
     Dates: start: 20180501, end: 20180627
  29. AVASTIN [Suspect]
     Active Substance: BEVACIZUMAB
     Route: 041
     Dates: start: 201308
  30. ALLELOCK [Suspect]
     Active Substance: OLOPATADINE HYDROCHLORIDE
     Indication: PRODUCT USED FOR UNKNOWN INDICATION
     Dosage: DOSAGE IS UNCERTAIN.
     Route: 065
  31. PEMETREXED DISODIUM HEPTAHYDRATE [Concomitant]
     Active Substance: PEMETREXED
     Indication: LUNG ADENOCARCINOMA
     Dosage: DOSAGE IS UNCERTAIN.
     Route: 041
     Dates: start: 201305
  32. ERLOTINIB [Suspect]
     Active Substance: ERLOTINIB
     Route: 048
     Dates: start: 20150202, end: 20150613
  33. ERLOTINIB [Suspect]
     Active Substance: ERLOTINIB
     Route: 048
     Dates: start: 20180815
  34. AVASTIN [Suspect]
     Active Substance: BEVACIZUMAB
     Dosage: UNK UNK, UNKNOWN FREQ. (DOSAGE IS UNCERTAIN.)
     Route: 041
     Dates: start: 201909

REACTIONS (7)
  - Febrile neutropenia [Unknown]
  - Malignant neoplasm progression [Unknown]
  - Cholestasis [Recovering/Resolving]
  - Rash [Recovered/Resolved]
  - Platelet count decreased [Unknown]
  - Neutropenia [Recovered/Resolved]
  - Osteonecrosis of jaw [Recovering/Resolving]

NARRATIVE: CASE EVENT DATE: 20140507
